FAERS Safety Report 7502570-3 (Version None)
Quarter: 2011Q2

REPORT INFORMATION
  Report Type: 
  Country: None (occurrence: None)
  Receive Date: 20110525
  Receipt Date: 20110523
  Transmission Date: 20111010
  Serious: Yes (Life-Threatening, Hospitalization, Other)
  Sender: FDA-Public Use
  Company Number: BR-PFIZER INC-2011110386

PATIENT
  Age: 34 Year
  Sex: Male
  Weight: 76 kg

DRUGS (2)
  1. PROPRANOLOL [Concomitant]
     Dosage: UNK
  2. LONITEN [Suspect]
     Indication: HYPERTENSION
     Dosage: 10 MG, 1X/DAY
     Route: 048
     Dates: start: 19960201

REACTIONS (2)
  - RENAL DISORDER [None]
  - LUNG DISORDER [None]
